FAERS Safety Report 8402462-1 (Version None)
Quarter: 2012Q2

REPORT INFORMATION
  Report Type: 
  Country: None (occurrence: None)
  Receive Date: 20120601
  Receipt Date: 20120531
  Transmission Date: 20120825
  Serious: Yes (Life-Threatening, Hospitalization, Disabling, Other)
  Sender: FDA-Public Use
  Company Number: JP-ROCHE-1056958

PATIENT
  Sex: Female
  Weight: 40 kg

DRUGS (16)
  1. DEXAMETHASONE SODIUM PHOSPHATE [Concomitant]
     Indication: PROPHYLAXIS OF NAUSEA AND VOMITING
     Route: 041
     Dates: start: 20111210, end: 20111212
  2. CARBOPLATIN [Concomitant]
     Route: 041
     Dates: start: 20120206, end: 20120206
  3. DEXAMETHASONE SODIUM PHOSPHATE [Concomitant]
     Route: 041
     Dates: start: 20120127, end: 20120129
  4. AVASTIN [Suspect]
     Indication: LUNG CARCINOMA CELL TYPE UNSPECIFIED RECURRENT
     Route: 041
     Dates: start: 20111209, end: 20111209
  5. CARBOPLATIN [Concomitant]
     Route: 041
     Dates: start: 20120106, end: 20120106
  6. DEXAMETHASONE SODIUM PHOSPHATE [Concomitant]
     Route: 041
     Dates: start: 20120107, end: 20120109
  7. AVASTIN [Suspect]
     Route: 041
     Dates: start: 20120106, end: 20120106
  8. TAXOL [Concomitant]
     Indication: LUNG CARCINOMA CELL TYPE UNSPECIFIED RECURRENT
     Route: 041
     Dates: start: 20111209, end: 20111209
  9. FLURBIPROFEN [Concomitant]
     Indication: ANALGESIC THERAPY
     Route: 041
     Dates: start: 20111226, end: 20111226
  10. TAXOL [Concomitant]
     Route: 041
     Dates: start: 20120206, end: 20120206
  11. CARBOPLATIN [Concomitant]
     Indication: LUNG CARCINOMA CELL TYPE UNSPECIFIED RECURRENT
     Route: 041
     Dates: start: 20111209, end: 20111209
  12. DEXAMETHASONE SODIUM PHOSPHATE [Concomitant]
     Route: 041
     Dates: start: 20120207, end: 20120209
  13. FLURBIPROFEN [Concomitant]
     Route: 041
     Dates: start: 20120126, end: 20120126
  14. FLURBIPROFEN [Concomitant]
     Route: 041
     Dates: start: 20120208, end: 20120208
  15. AVASTIN [Suspect]
     Route: 041
     Dates: start: 20120206, end: 20120206
  16. TAXOL [Concomitant]
     Route: 041
     Dates: start: 20120106, end: 20120106

REACTIONS (7)
  - LARGE INTESTINE PERFORATION [None]
  - GASTROINTESTINAL HAEMORRHAGE [None]
  - ANAEMIA [None]
  - NEUTROPENIA [None]
  - LARGE INTESTINAL ULCER [None]
  - DEVICE RELATED INFECTION [None]
  - INFECTION [None]
